FAERS Safety Report 20185881 (Version 1)
Quarter: 2021Q4

REPORT INFORMATION
  Report Type: Other
  Country: IN (occurrence: None)
  Receive Date: 20211215
  Receipt Date: 20211215
  Transmission Date: 20220303
  Serious: Yes (Other)
  Sender: FDA-Public Use
  Company Number: IN-Encube-000127

PATIENT
  Age: 45 Year
  Sex: Male

DRUGS (4)
  1. TRIAMCINOLONE [Suspect]
     Active Substance: TRIAMCINOLONE
     Indication: Scleritis
     Dosage: SUBCONJUNCTIVAL TRIAMCINOLONE ACETATE (4 MG)
  2. PREDNISOLONE [Concomitant]
     Active Substance: PREDNISOLONE
     Indication: Scleritis
     Dosage: 1 MG/KG (1% SIX TIMES) PER DAY
     Route: 061
  3. INDOMETHACIN [Concomitant]
     Active Substance: INDOMETHACIN
     Indication: Scleritis
     Dosage: 75 MG TWICE DAILY
     Route: 048
  4. PREDNISOLONE [Concomitant]
     Active Substance: PREDNISOLONE
     Indication: Scleritis
     Dosage: 1 MG/KG PER DAY

REACTIONS (4)
  - Scleritis [Recovered/Resolved]
  - Condition aggravated [Recovered/Resolved]
  - Cataract [Recovered/Resolved]
  - Necrotising scleritis [Recovered/Resolved]
